FAERS Safety Report 9334827 (Version 1)
Quarter: 2013Q2

REPORT INFORMATION
  Report Type: Spontaneous
  Country: US (occurrence: US)
  Receive Date: 20130606
  Receipt Date: 20130606
  Transmission Date: 20140414
  Serious: No
  Sender: FDA-Public Use
  Company Number: US-AMGEN-USASP2013025585

PATIENT
  Age: 71 Year
  Sex: Female
  Weight: 67.12 kg

DRUGS (4)
  1. PROLIA [Suspect]
     Indication: OSTEOPOROSIS POSTMENOPAUSAL
     Dosage: 60 MG, Q6MO
     Route: 058
     Dates: start: 20130404
  2. CHOLESTEROL [Concomitant]
  3. FLUID [Concomitant]
  4. THYROID [Concomitant]

REACTIONS (1)
  - Pain in extremity [Unknown]
